FAERS Safety Report 8935972 (Version 1)
Quarter: 2012Q4

REPORT INFORMATION
  Report Type: 
  Country: GB (occurrence: GB)
  Receive Date: 20121130
  Receipt Date: 20121130
  Transmission Date: 20130627
  Serious: Yes (Other)
  Sender: FDA-Public Use
  Company Number: GB-SANOFI-AVENTIS-2012SA086592

PATIENT
  Age: 74 Year
  Sex: Female

DRUGS (6)
  1. FUROSEMIDE [Suspect]
     Indication: FLUID RETENTION
     Route: 065
     Dates: start: 1998
  2. SIMVASTATIN [Suspect]
     Indication: BLOOD CHOLESTEROL INCREASED
     Route: 065
     Dates: start: 2008, end: 20121103
  3. LISINOPRIL [Suspect]
     Indication: BLOOD PRESSURE
     Route: 065
     Dates: start: 2012, end: 201211
  4. WARFARIN [Suspect]
     Indication: COAGULATION TIME ABNORMAL
     Dosage: 2 brown tablets, 1 day
     Route: 065
     Dates: start: 201209
  5. ALLOPURINOL [Suspect]
     Indication: GOUT
     Route: 065
     Dates: start: 2003, end: 201211
  6. GLICLAZIDE [Suspect]
     Indication: ANXIETY
     Route: 065
     Dates: start: 1983

REACTIONS (3)
  - Face oedema [Not Recovered/Not Resolved]
  - Hot flush [Not Recovered/Not Resolved]
  - Malaise [Not Recovered/Not Resolved]
